FAERS Safety Report 14411668 (Version 3)
Quarter: 2018Q1

REPORT INFORMATION
  Report Type: Spontaneous
  Country: GB (occurrence: GB)
  Receive Date: 20180119
  Receipt Date: 20180125
  Transmission Date: 20180509
  Serious: Yes (Other)
  Sender: FDA-Public Use
  Company Number: GB-PFIZER INC-2018024172

PATIENT
  Age: 67 Year
  Sex: Male
  Weight: 99 kg

DRUGS (12)
  1. AMITRIPTYLINE [Interacting]
     Active Substance: AMITRIPTYLINE
     Dosage: 25 MG, UNK
     Route: 065
  2. LOSARTAN POTASSIUM. [Interacting]
     Active Substance: LOSARTAN POTASSIUM
     Dosage: 100 MG, UNK
     Route: 065
  3. PARACETAMOL [Interacting]
     Active Substance: ACETAMINOPHEN
     Dosage: 500 MG, UNK
     Route: 065
  4. MEBEVERINE HYDROCHLORIDE [Interacting]
     Active Substance: MEBEVERINE HYDROCHLORIDE
     Dosage: 200 MG, UNK
     Route: 065
  5. CARDURA XL [Interacting]
     Active Substance: DOXAZOSIN MESYLATE
     Dosage: 8 MG, UNK
     Route: 048
     Dates: start: 20171222, end: 20171225
  6. ZAMADOL [Interacting]
     Active Substance: TRAMADOL HYDROCHLORIDE
     Dosage: 200 MG, UNK
     Route: 065
  7. AMLODIPINE BESILATE [Interacting]
     Active Substance: AMLODIPINE BESYLATE
     Dosage: 10 MG, UNK
     Route: 065
  8. PRAVASTATIN SODIUM. [Interacting]
     Active Substance: PRAVASTATIN SODIUM
     Dosage: 20 MG, UNK
     Route: 065
  9. FOLIC ACID. [Interacting]
     Active Substance: FOLIC ACID
     Dosage: 5 MG, UNK
     Route: 065
  10. LANSOPRAZOLE. [Interacting]
     Active Substance: LANSOPRAZOLE
     Dosage: 30 MG, UNK
     Route: 065
  11. CARDURA XL [Suspect]
     Active Substance: DOXAZOSIN MESYLATE
     Indication: HYPERTENSION
     Dosage: 4 MG, UNK
     Route: 048
  12. FERROUS FUMARATE [Interacting]
     Active Substance: FERROUS FUMARATE
     Dosage: 305 MG, UNK
     Route: 065

REACTIONS (6)
  - Myalgia [Recovering/Resolving]
  - Asthenia [Recovering/Resolving]
  - Constipation [Recovering/Resolving]
  - Drug interaction [Unknown]
  - Abdominal pain upper [Recovering/Resolving]
  - Abdominal distension [Recovering/Resolving]

NARRATIVE: CASE EVENT DATE: 20171224
